FAERS Safety Report 8793024 (Version 2)
Quarter: 2012Q4

REPORT INFORMATION
  Report Type: 
  Country: US (occurrence: US)
  Receive Date: 20120917
  Receipt Date: 20121212
  Transmission Date: 20130627
  Serious: No
  Sender: FDA-Public Use
  Company Number: US-ASTRAZENECA-2012SE65481

PATIENT
  Age: 56 Year
  Sex: Male

DRUGS (3)
  1. NEXIUM [Suspect]
     Indication: GASTROOESOPHAGEAL REFLUX DISEASE
     Route: 048
  2. PRILOSEC [Suspect]
     Route: 048
  3. PEPCID [Concomitant]

REACTIONS (9)
  - Barrett^s oesophagus [Unknown]
  - Cough [Unknown]
  - Dyspepsia [Unknown]
  - Hiatus hernia [Unknown]
  - Gastritis [Unknown]
  - Gastrooesophageal reflux disease [Unknown]
  - Oesophageal ulcer [Unknown]
  - Vomiting [Unknown]
  - Drug ineffective [Unknown]
